FAERS Safety Report 25216249 (Version 3)
Quarter: 2025Q4

REPORT INFORMATION
  Report Type: Spontaneous
  Country: US (occurrence: US)
  Receive Date: 20250418
  Receipt Date: 20251006
  Transmission Date: 20260117
  Serious: Yes (Death)
  Sender: CALIFORNIA DEPARTMENT OF PUBLIC HEALTH
  Company Number: US-California Department of Public Health-2175184

PATIENT
  Age: 5 Month
  Sex: Female
  Weight: 6.89 kg

DRUGS (6)
  1. BABYBIG [Suspect]
     Active Substance: HUMAN BOTULINUM NEUROTOXIN A/B IMMUNE GLOBULIN
     Indication: Botulism
     Dates: start: 20250322, end: 20250322
  2. Biotin, medication at discharge on 28 March 2025 discrepant info in Di [Concomitant]
  3. FAMOTIDINE [Concomitant]
     Active Substance: FAMOTIDINE
  4. polyethylene glycol, medication at discharge 28 March 2025 (MiraLAX) 1 [Concomitant]
  5. L-carnitine, medication at discharge 28 March  150 mg (1.5 mL) ^by mou [Concomitant]
  6. Coenzyme Q10, medication at discharge 28 March 2025 30 mg/5 mL - 15 mg [Concomitant]

REACTIONS (1)
  - Death [Fatal]

NARRATIVE: CASE EVENT DATE: 20250404
